FAERS Safety Report 22654540 (Version 6)
Quarter: 2024Q4

REPORT INFORMATION
  Report Type: Spontaneous
  Country: US (occurrence: US)
  Receive Date: 20230629
  Receipt Date: 20241210
  Transmission Date: 20250115
  Serious: Yes (Life-Threatening, Hospitalization, Other)
  Sender: PURDUE
  Company Number: US-PURDUE PHARMA-USA-2023-0303066

PATIENT
  Age: 50 Year
  Sex: Male

DRUGS (23)
  1. OXYCONTIN [Suspect]
     Active Substance: OXYCODONE HYDROCHLORIDE
     Indication: Pain
     Dosage: UNK
     Route: 048
  2. OXYCONTIN [Suspect]
     Active Substance: OXYCODONE HYDROCHLORIDE
     Dosage: 10-325MG (140-180 TABLETS)
     Route: 048
  3. OXYCONTIN [Suspect]
     Active Substance: OXYCODONE HYDROCHLORIDE
     Dosage: 80 MG TABLET (100-150? TABLETS)
     Route: 048
     Dates: start: 201305, end: 2017
  4. OXYCODONE HYDROCHLORIDE [Suspect]
     Active Substance: OXYCODONE HYDROCHLORIDE
     Indication: Pain
     Dosage: 150 DOSAGE FORM, MONTHLY/ 10-325 TABLET
     Route: 065
  5. OXYCODONE HYDROCHLORIDE [Suspect]
     Active Substance: OXYCODONE HYDROCHLORIDE
     Dosage: 60 DOSAGE FORM, MONTHLY
     Route: 065
  6. OXYCODONE HYDROCHLORIDE [Suspect]
     Active Substance: OXYCODONE HYDROCHLORIDE
     Dosage: 150 DOSAGE FORM (150 PILLS)
     Route: 065
  7. OXYCODONE HYDROCHLORIDE [Suspect]
     Active Substance: OXYCODONE HYDROCHLORIDE
     Dosage: 90 TO 150 PILLS
     Route: 065
  8. OXYCODONE HYDROCHLORIDE [Suspect]
     Active Substance: OXYCODONE HYDROCHLORIDE
     Dosage: 120 TO 150 PILLS
     Route: 065
  9. OXYCODONE HYDROCHLORIDE [Suspect]
     Active Substance: OXYCODONE HYDROCHLORIDE
     Dosage: 120 DOSAGE FORM
     Route: 065
     Dates: start: 2013, end: 2017
  10. OXYCODONE HYDROCHLORIDE [Suspect]
     Active Substance: OXYCODONE HYDROCHLORIDE
     Dosage: 240 TABLET, MONTHLY (2230 TABLETS)120 TABLETS OF OXYCODONE AND OVER 120 TABLETS EQUALING A MONTHLY S
     Route: 048
     Dates: start: 20130524, end: 20170328
  11. OXYCODONE HYDROCHLORIDE [Suspect]
     Active Substance: OXYCODONE HYDROCHLORIDE
     Dosage: 80 MG TABLET (100-150 TABLETS)
     Route: 048
     Dates: start: 201305, end: 2017
  12. OXYCODONE HYDROCHLORIDE [Suspect]
     Active Substance: OXYCODONE HYDROCHLORIDE
     Indication: Product used for unknown indication
     Dosage: UNK
     Route: 048
  13. OXYCODONE HYDROCHLORIDE [Suspect]
     Active Substance: OXYCODONE HYDROCHLORIDE
     Indication: Product used for unknown indication
     Dosage: UNK
     Route: 048
  14. BUPRENORPHINE [Suspect]
     Active Substance: BUPRENORPHINE
     Indication: Product used for unknown indication
     Dosage: UNK
     Route: 062
  15. BUPRENORPHINE HYDROCHLORIDE AND NALOXONE HYDROCHLORIDE [Suspect]
     Active Substance: BUPRENORPHINE HYDROCHLORIDE\NALOXONE HYDROCHLORIDE
     Indication: Product used for unknown indication
     Dosage: 30 TABLET, MONTHLY
     Route: 065
  16. ACETAMINOPHEN\OXYCODONE HYDROCHLORIDE [Suspect]
     Active Substance: ACETAMINOPHEN\OXYCODONE HYDROCHLORIDE
     Indication: Pain management
     Dosage: 10-325 TABLET
     Route: 048
  17. ACETAMINOPHEN\OXYCODONE HYDROCHLORIDE [Suspect]
     Active Substance: ACETAMINOPHEN\OXYCODONE HYDROCHLORIDE
     Dosage: 10-325 MG THREE TIMES A DAY
     Route: 048
     Dates: start: 2013, end: 2017
  18. TRAMADOL [Suspect]
     Active Substance: TRAMADOL
     Indication: Pain management
     Dosage: 50 MILLIGRAM TABLET
     Route: 048
     Dates: start: 2013
  19. TRAMADOL [Suspect]
     Active Substance: TRAMADOL
     Dosage: 150 DOSAGE FORM, MONTHLY (150 PILLS EACH PER MONTH)
     Route: 048
     Dates: start: 2013
  20. TRAMADOL [Suspect]
     Active Substance: TRAMADOL
     Dosage: 90-120 PILLS
     Route: 048
  21. TRAMADOL [Suspect]
     Active Substance: TRAMADOL
     Dosage: 120 DOSAGE FORM
     Route: 048
     Dates: start: 2013, end: 2017
  22. TRAMADOL [Suspect]
     Active Substance: TRAMADOL
     Dosage: 50 MILLIGRAM, 140 TRAMADOL
     Route: 048
  23. OXYCODONE [Suspect]
     Active Substance: OXYCODONE
     Indication: Product used for unknown indication
     Dosage: UNKNOWN
     Route: 065

REACTIONS (49)
  - Decreased appetite [Unknown]
  - Constipation [Unknown]
  - Dyspnoea [Unknown]
  - Respiratory depression [Unknown]
  - Somnolence [Unknown]
  - Peripheral swelling [Unknown]
  - Hyperhidrosis [Unknown]
  - Anxiety [Unknown]
  - Respiratory rate increased [Unknown]
  - Sedation [Unknown]
  - Dry mouth [Unknown]
  - Heart rate increased [Unknown]
  - Dizziness [Unknown]
  - Pruritus [Unknown]
  - Headache [Unknown]
  - Nausea [Unknown]
  - Illness [Not Recovered/Not Resolved]
  - Overdose [Unknown]
  - Suicidal ideation [Unknown]
  - Hypoxia [Unknown]
  - Mental impairment [Unknown]
  - Loss of consciousness [Unknown]
  - Respiratory failure [Unknown]
  - Drug dependence [Not Recovered/Not Resolved]
  - Drug abuse [Unknown]
  - Mental disability [Unknown]
  - Physical disability [Unknown]
  - Pain [Not Recovered/Not Resolved]
  - Migraine [Unknown]
  - Chest pain [Unknown]
  - Emotional distress [Not Recovered/Not Resolved]
  - Mood altered [Unknown]
  - General physical health deterioration [Unknown]
  - Functional gastrointestinal disorder [Unknown]
  - Injury [Unknown]
  - Sexual dysfunction [Unknown]
  - Deformity [Unknown]
  - Fall [Unknown]
  - Fracture [Unknown]
  - Vomiting [Unknown]
  - Abdominal discomfort [Unknown]
  - Asthenia [Unknown]
  - Drug withdrawal syndrome [Not Recovered/Not Resolved]
  - Product prescribing issue [Unknown]
  - Myalgia [Unknown]
  - Impaired quality of life [Unknown]
  - Loss of personal independence in daily activities [Unknown]
  - Feeling of despair [Unknown]
  - Mental disorder [Unknown]

NARRATIVE: CASE EVENT DATE: 20130524
